FAERS Safety Report 7074926-7 (Version None)
Quarter: 2010Q4

REPORT INFORMATION
  Report Type: 
  Country: None (occurrence: None)
  Receive Date: 20101029
  Receipt Date: 20101027
  Transmission Date: 20110411
  Serious: Yes (Disabling)
  Sender: FDA-Public Use
  Company Number: FI-MERCK-1010FIN00024

PATIENT
  Age: 73 Year
  Sex: Female

DRUGS (4)
  1. FOSAMAX PLUS D [Suspect]
     Indication: OSTEOPOROSIS
     Route: 048
     Dates: start: 19990101, end: 20101021
  2. GLUCOSAMINE SULFATE [Concomitant]
     Indication: OSTEOARTHRITIS
     Route: 048
     Dates: start: 20100225
  3. CALCIUM CARBONATE AND CHOLECALCIFEROL [Concomitant]
     Indication: OSTEOPOROSIS
     Route: 048
     Dates: start: 19990101
  4. ESTRADIOL [Concomitant]
     Indication: VAGINAL DISORDER
     Route: 067
     Dates: start: 20090603

REACTIONS (1)
  - STRESS FRACTURE [None]
